FAERS Safety Report 7403029-4 (Version None)
Quarter: 2011Q2

REPORT INFORMATION
  Report Type: 
  Country: None (occurrence: None)
  Receive Date: 20110408
  Receipt Date: 20110131
  Transmission Date: 20111010
  Serious: No
  Sender: FDA-Public Use
  Company Number: US-NOVEN-11US001703

PATIENT
  Sex: Female

DRUGS (3)
  1. FENTANYL [Suspect]
     Indication: PAIN
     Dosage: 50 UG, Q 48 HOURS
     Route: 062
     Dates: start: 20040101
  2. FENTANYL [Suspect]
     Dosage: 50 UG, Q 48HRS
     Dates: start: 20100201
  3. LORTAB [Concomitant]
     Indication: PAIN
     Dosage: UNK, PRN
     Route: 048

REACTIONS (3)
  - PRODUCT QUALITY ISSUE [None]
  - INADEQUATE ANALGESIA [None]
  - BLOOD PRESSURE INCREASED [None]
